FAERS Safety Report 12219955 (Version 3)
Quarter: 2016Q3

REPORT INFORMATION
  Report Type: Report from Study
  Country: US (occurrence: US)
  Receive Date: 20160330
  Receipt Date: 20160703
  Transmission Date: 20161109
  Serious: Yes (Death, Hospitalization, Other)
  Sender: FDA-Public Use
  Company Number: US-BEH-2016060437

PATIENT
  Age: 65 Year
  Sex: Male
  Weight: 122.8 kg

DRUGS (2)
  1. ZEMAIRA [Suspect]
     Active Substance: .ALPHA.1-PROTEINASE INHIBITOR HUMAN
     Indication: ACUTE GRAFT VERSUS HOST DISEASE
     Dosage: DURATION OF INFUSION 30 MIN
     Route: 042
     Dates: start: 20160127, end: 20160206
  2. ZEMAIRA [Suspect]
     Active Substance: .ALPHA.1-PROTEINASE INHIBITOR HUMAN
     Indication: MYELODYSPLASTIC SYNDROME

REACTIONS (11)
  - Pyrexia [Unknown]
  - Blood pressure decreased [Unknown]
  - Atrial fibrillation [Unknown]
  - Pneumonia [Unknown]
  - Aspiration [Unknown]
  - Pulmonary alveolar haemorrhage [Unknown]
  - Fluid overload [Unknown]
  - Lung infection [Unknown]
  - Respiratory failure [Fatal]
  - Sepsis [Unknown]
  - Acute respiratory distress syndrome [Unknown]

NARRATIVE: CASE EVENT DATE: 2016
